FAERS Safety Report 9611619 (Version 1)
Quarter: 2013Q4

REPORT INFORMATION
  Report Type: Spontaneous
  Country: IT (occurrence: IT)
  Receive Date: 20131010
  Receipt Date: 20131010
  Transmission Date: 20140711
  Serious: Yes (Other)
  Sender: FDA-Public Use
  Company Number: IT-TEVA-437175ISR

PATIENT
  Sex: 0

DRUGS (2)
  1. AZILECT [Suspect]
     Route: 048
  2. NEUPRO [Suspect]

REACTIONS (1)
  - Congestive cardiomyopathy [Unknown]
